FAERS Safety Report 9255183 (Version 1)
Quarter: 2013Q1

REPORT INFORMATION
  Report Type: Spontaneous
  Country: US (occurrence: None)
  Receive Date: 20121212
  Receipt Date: 20121212
  Transmission Date: 20140127
  Serious: No
  Sender: FDA-Public Use
  Company Number: 1211USA003584

PATIENT
  Age: 39 Year
  Sex: Male

DRUGS (1)
  1. VICTRELIS [Suspect]
     Indication: HEPATITIS C
     Route: 048
     Dates: start: 20120906, end: 20121030

REACTIONS (4)
  - Faeces discoloured [None]
  - Abdominal pain upper [None]
  - Decreased appetite [None]
  - Vomiting [None]
